FAERS Safety Report 14617225 (Version 3)
Quarter: 2018Q1

REPORT INFORMATION
  Report Type: Spontaneous
  Country: US (occurrence: US)
  Receive Date: 20180309
  Receipt Date: 20180330
  Transmission Date: 20180509
  Serious: Yes (Hospitalization)
  Sender: FDA-Public Use
  Company Number: US-ALLERGAN-1812960US

PATIENT
  Age: 58 Year
  Sex: Male
  Weight: 97.51 kg

DRUGS (1)
  1. TEFLARO [Suspect]
     Active Substance: CEFTAROLINE FOSAMIL
     Indication: FURUNCLE
     Dosage: 600 MG, Q12H
     Route: 042
     Dates: start: 20180207, end: 20180210

REACTIONS (6)
  - Throat tightness [Recovered/Resolved]
  - Palpitations [Recovered/Resolved]
  - Appetite disorder [Recovered/Resolved]
  - Blood pressure decreased [Recovered/Resolved]
  - Myocardial infarction [Recovered/Resolved]
  - Nervousness [Recovered/Resolved]

NARRATIVE: CASE EVENT DATE: 20180209
